FAERS Safety Report 5404904-2 (Version None)
Quarter: 2007Q3

REPORT INFORMATION
  Report Type: 
  Country: None (occurrence: None)
  Receive Date: 20070803
  Receipt Date: 20070731
  Transmission Date: 20080115
  Serious: Yes (Other)
  Sender: FDA-Public Use
  Company Number: HQWYE100514DEC06

PATIENT
  Sex: Male

DRUGS (2)
  1. PANTOPRAZOLE SODIUM [Suspect]
     Indication: ABDOMINAL HERNIA
     Dosage: ^DF^
     Route: 048
     Dates: start: 20060405, end: 20060406
  2. VOLTAREN T [Concomitant]
     Dosage: ^DF^
     Route: 065
     Dates: start: 20060405, end: 20060406

REACTIONS (2)
  - HEPATIC NECROSIS [None]
  - HEPATITIS [None]
